FAERS Safety Report 6043853-6 (Version None)
Quarter: 2009Q1

REPORT INFORMATION
  Report Type: 
  Country: None (occurrence: None)
  Receive Date: 20090120
  Receipt Date: 20090113
  Transmission Date: 20090719
  Serious: Yes (Disabling)
  Sender: FDA-Public Use
  Company Number: CH-BRISTOL-MYERS SQUIBB COMPANY-14469142

PATIENT
  Age: 51 Year
  Sex: Female

DRUGS (3)
  1. ABILIFY [Suspect]
     Indication: PSYCHOTIC DISORDER
     Route: 048
     Dates: start: 20081219, end: 20090110
  2. EFFEXOR [Concomitant]
  3. SEROQUEL [Concomitant]
     Dates: start: 20071201

REACTIONS (2)
  - APHTHOUS STOMATITIS [None]
  - ORAL DISCOMFORT [None]
